FAERS Safety Report 7533025-8 (Version None)
Quarter: 2011Q2

REPORT INFORMATION
  Report Type: 
  Country: None (occurrence: None)
  Receive Date: 20110608
  Receipt Date: 20110525
  Transmission Date: 20111010
  Serious: Yes (Hospitalization, Other)
  Sender: FDA-Public Use
  Company Number: PHHY2011CN46178

PATIENT
  Age: 78 Year
  Sex: Male

DRUGS (4)
  1. GLEEVEC [Suspect]
     Dosage: 400 MG, QD
     Dates: start: 20110520
  2. TASIGNA [Suspect]
     Indication: CHRONIC MYELOID LEUKAEMIA
     Dosage: 400 MG, QD
     Dates: start: 20110501
  3. TASIGNA [Suspect]
     Dosage: 400 MG, QD
  4. TASIGNA [Suspect]
     Dosage: 600 MG, QD

REACTIONS (2)
  - ELECTROCARDIOGRAM QT PROLONGED [None]
  - ACUTE LEFT VENTRICULAR FAILURE [None]
